FAERS Safety Report 22280467 (Version 2)
Quarter: 2023Q2

REPORT INFORMATION
  Report Type: Report from Study
  Country: CN (occurrence: None)
  Receive Date: 20230503
  Receipt Date: 20230615
  Transmission Date: 20230721
  Serious: Yes (Hospitalization)
  Sender: FDA-Public Use
  Company Number: 2023A096953

PATIENT
  Age: 83 Year
  Sex: Male

DRUGS (32)
  1. CISPLATIN [Suspect]
     Active Substance: CISPLATIN
     Indication: Oesophageal squamous cell carcinoma
     Dates: start: 20230330, end: 20230330
  2. CISPLATIN [Suspect]
     Active Substance: CISPLATIN
     Indication: Oesophageal squamous cell carcinoma
     Dates: start: 20230406, end: 20230406
  3. CISPLATIN [Suspect]
     Active Substance: CISPLATIN
     Indication: Oesophageal squamous cell carcinoma
     Dates: start: 20230413, end: 20230413
  4. CISPLATIN [Suspect]
     Active Substance: CISPLATIN
     Indication: Oesophageal squamous cell carcinoma
     Dates: start: 20230515, end: 20230515
  5. DURVALUMAB [Suspect]
     Active Substance: DURVALUMAB
     Indication: Oesophageal squamous cell carcinoma
     Route: 042
     Dates: start: 20230330, end: 20230330
  6. DURVALUMAB [Suspect]
     Active Substance: DURVALUMAB
     Indication: Oesophageal squamous cell carcinoma
     Route: 042
     Dates: start: 20230515, end: 20230515
  7. CAPECITABINE [Suspect]
     Active Substance: CAPECITABINE
     Indication: Oesophageal squamous cell carcinoma
     Dates: start: 20230330, end: 20230330
  8. CAPECITABINE [Suspect]
     Active Substance: CAPECITABINE
     Indication: Oesophageal squamous cell carcinoma
     Dates: start: 20230331, end: 20230403
  9. CAPECITABINE [Suspect]
     Active Substance: CAPECITABINE
     Indication: Oesophageal squamous cell carcinoma
     Dates: start: 20230404, end: 20230404
  10. CAPECITABINE [Suspect]
     Active Substance: CAPECITABINE
     Indication: Oesophageal squamous cell carcinoma
     Dates: start: 20230406, end: 20230406
  11. CAPECITABINE [Suspect]
     Active Substance: CAPECITABINE
     Indication: Oesophageal squamous cell carcinoma
     Dates: start: 20230407, end: 20230410
  12. CAPECITABINE [Suspect]
     Active Substance: CAPECITABINE
     Indication: Oesophageal squamous cell carcinoma
     Dates: start: 20230411, end: 20230411
  13. CAPECITABINE [Suspect]
     Active Substance: CAPECITABINE
     Indication: Oesophageal squamous cell carcinoma
     Dates: start: 20230413, end: 20230413
  14. CAPECITABINE [Suspect]
     Active Substance: CAPECITABINE
     Indication: Oesophageal squamous cell carcinoma
     Dates: start: 20230414, end: 20230417
  15. CAPECITABINE [Suspect]
     Active Substance: CAPECITABINE
     Indication: Oesophageal squamous cell carcinoma
     Dates: start: 20230418, end: 20230418
  16. CAPECITABINE [Suspect]
     Active Substance: CAPECITABINE
     Indication: Oesophageal squamous cell carcinoma
     Dates: start: 20230515, end: 20230515
  17. CAPECITABINE [Suspect]
     Active Substance: CAPECITABINE
     Indication: Oesophageal squamous cell carcinoma
     Dates: start: 20230516, end: 20230519
  18. CAPECITABINE [Suspect]
     Active Substance: CAPECITABINE
     Indication: Oesophageal squamous cell carcinoma
     Dates: start: 20230520, end: 20230520
  19. TROPISETRON HYDROCHLORIDE INJECTION [Concomitant]
     Indication: Vomiting
     Route: 042
     Dates: start: 20230330, end: 20230331
  20. TROPISETRON HYDROCHLORIDE INJECTION [Concomitant]
     Indication: Vomiting
     Route: 042
     Dates: start: 20230406, end: 20230407
  21. TROPISETRON HYDROCHLORIDE INJECTION [Concomitant]
     Indication: Vomiting
     Route: 042
     Dates: start: 20230413, end: 20230414
  22. PANTOPRAZOLE SODIUM [Concomitant]
     Active Substance: PANTOPRAZOLE SODIUM
     Indication: Prophylaxis
     Route: 042
     Dates: start: 20230330, end: 20230331
  23. PANTOPRAZOLE SODIUM [Concomitant]
     Active Substance: PANTOPRAZOLE SODIUM
     Indication: Prophylaxis
     Route: 042
     Dates: start: 20230406, end: 20230407
  24. PANTOPRAZOLE SODIUM [Concomitant]
     Active Substance: PANTOPRAZOLE SODIUM
     Indication: Prophylaxis
     Route: 042
     Dates: start: 20230413, end: 20230414
  25. MAGNESIUM ISOGLYCYRRHIZINATE INJECTION [Concomitant]
     Indication: Liver transplant rejection
     Route: 042
     Dates: start: 20230330, end: 20230331
  26. MAGNESIUM ISOGLYCYRRHIZINATE INJECTION [Concomitant]
     Indication: Liver transplant rejection
     Route: 042
     Dates: start: 20230406, end: 20230407
  27. MAGNESIUM ISOGLYCYRRHIZINATE INJECTION [Concomitant]
     Indication: Liver transplant rejection
     Route: 042
     Dates: start: 20230413, end: 20230414
  28. DEXTROSE [Concomitant]
     Active Substance: DEXTROSE\DEXTROSE MONOHYDRATE
     Indication: Dehydration
     Route: 042
     Dates: start: 20230330, end: 20230331
  29. DEXTROSE [Concomitant]
     Active Substance: DEXTROSE\DEXTROSE MONOHYDRATE
     Indication: Dehydration
     Route: 042
     Dates: start: 20230406, end: 20230407
  30. DEXTROSE [Concomitant]
     Active Substance: DEXTROSE\DEXTROSE MONOHYDRATE
     Indication: Dehydration
     Route: 042
     Dates: start: 20230413, end: 20230414
  31. HUMAN GRANULOCYTE COLONY STIMULATING FACTOR INJECTION [Concomitant]
     Indication: White blood cell count decreased
     Route: 042
     Dates: start: 20230419, end: 20230419
  32. LEUCOGEN TABLETS [Concomitant]
     Indication: Platelet count decreased
     Route: 048
     Dates: start: 20230419

REACTIONS (1)
  - Myelosuppression [Recovering/Resolving]

NARRATIVE: CASE EVENT DATE: 20230424
